FAERS Safety Report 6593144-X (Version None)
Quarter: 2010Q1

REPORT INFORMATION
  Report Type: 
  Country: None (occurrence: None)
  Receive Date: 20100222
  Receipt Date: 20100209
  Transmission Date: 20100710
  Serious: Yes (Hospitalization, Other)
  Sender: FDA-Public Use
  Company Number: PHHY2010US07413

PATIENT
  Age: 66 Year
  Sex: Female

DRUGS (4)
  1. VALSARTAN [Suspect]
     Dosage: 160 MG DAILY
  2. LOSARTAN POTASSIUM [Concomitant]
     Dosage: 50 MG DAILY
  3. LISINOPRIL [Concomitant]
     Dosage: 5 MG DAILY
  4. TACROLIMUS [Concomitant]
     Dosage: UNK

REACTIONS (13)
  - ANION GAP INCREASED [None]
  - BLOOD CALCIUM INCREASED [None]
  - BLOOD CREATININE INCREASED [None]
  - BLOOD PHOSPHORUS INCREASED [None]
  - BRADYCARDIA [None]
  - CARBON DIOXIDE DECREASED [None]
  - HAEMODIALYSIS [None]
  - HYPERKALAEMIA [None]
  - HYPOVOLAEMIA [None]
  - METABOLIC ACIDOSIS [None]
  - OLIGURIA [None]
  - RENAL FAILURE ACUTE [None]
  - RENAL TUBULAR NECROSIS [None]
